FAERS Safety Report 9784420 (Version 1)
Quarter: 2013Q4

REPORT INFORMATION
  Report Type: Spontaneous
  Country: US (occurrence: US)
  Receive Date: 20131226
  Receipt Date: 20131226
  Transmission Date: 20140711
  Serious: No
  Sender: FDA-Public Use
  Company Number: US-BIOGENIDEC-2013BI122589

PATIENT
  Age: 47 Year
  Sex: Female

DRUGS (4)
  1. TECFIDERA [Suspect]
     Indication: MULTIPLE SCLEROSIS
     Route: 048
     Dates: start: 201311
  2. TECFIDERA [Suspect]
     Indication: MULTIPLE SCLEROSIS
     Dates: start: 20131101
  3. TYSABRI [Concomitant]
     Indication: MULTIPLE SCLEROSIS
  4. AVONEX [Concomitant]
     Indication: MULTIPLE SCLEROSIS

REACTIONS (5)
  - Eye swelling [Unknown]
  - Lip swelling [Unknown]
  - Pruritus [Unknown]
  - Rash erythematous [Unknown]
  - Flushing [Unknown]
